FAERS Safety Report 15608625 (Version 5)
Quarter: 2019Q2

REPORT INFORMATION
  Report Type: Report from Study
  Country: CA (occurrence: CA)
  Receive Date: 20181112
  Receipt Date: 20190422
  Transmission Date: 20190711
  Serious: Yes (Hospitalization, Other)
  Sender: FDA-Public Use
  Company Number: CA-SA-2016SA168829

PATIENT
  Age: 34 Year
  Sex: Female

DRUGS (10)
  1. DIMENHYDRINATE. [Concomitant]
     Active Substance: DIMENHYDRINATE
     Indication: PREMEDICATION
     Dosage: 50 MG,UNK
     Route: 048
     Dates: start: 20160907, end: 20160909
  2. DIPHENHYDRAMINE. [Concomitant]
     Active Substance: DIPHENHYDRAMINE
     Indication: PREMEDICATION
     Dosage: 50 MG,UNK
     Route: 048
     Dates: start: 20160907, end: 20160909
  3. ACICLOVIR [Concomitant]
     Active Substance: ACYCLOVIR
     Indication: PREMEDICATION
     Dosage: 200 MG,BID
     Route: 048
     Dates: start: 20160907
  4. ALEMTUZUMAB [Suspect]
     Active Substance: ALEMTUZUMAB
     Indication: RELAPSING-REMITTING MULTIPLE SCLEROSIS
     Dosage: 12 MG,QD
     Route: 041
     Dates: start: 20160907, end: 20160909
  5. ACETAMINOPHEN. [Concomitant]
     Active Substance: ACETAMINOPHEN
     Indication: PREMEDICATION
     Dosage: DOSE: 975MG -1GM
     Route: 048
     Dates: start: 20160907
  6. RANITIDINE. [Concomitant]
     Active Substance: RANITIDINE
     Indication: PREMEDICATION
     Dosage: 150 MG,UNK
     Route: 048
     Dates: start: 20160907, end: 20160909
  7. ERGOCALCIFEROL. [Concomitant]
     Active Substance: ERGOCALCIFEROL
     Indication: SUPPLEMENTATION THERAPY
     Dosage: UNK UNK, UNK
     Route: 048
  8. SYNTHROID [Concomitant]
     Active Substance: LEVOTHYROXINE SODIUM
     Indication: HYPOTHYROIDISM
     Dosage: UNK, UNK
     Route: 048
     Dates: start: 1992
  9. METHYLPREDNISOLONE. [Concomitant]
     Active Substance: METHYLPREDNISOLONE
     Indication: PREMEDICATION
     Dosage: 1 G,UNK
     Route: 042
     Dates: start: 20160907, end: 20160909
  10. ATIVAN [Concomitant]
     Active Substance: LORAZEPAM
     Indication: SLEEP DISORDER
     Dosage: UNK UNK,PRN
     Route: 048
     Dates: start: 20160908

REACTIONS (40)
  - Paraesthesia [Recovering/Resolving]
  - Fatigue [Not Recovered/Not Resolved]
  - Urine abnormality [Recovered/Resolved]
  - Initial insomnia [Not Recovered/Not Resolved]
  - Influenza [Recovered/Resolved]
  - Autoimmune thyroiditis [Unknown]
  - Asthenia [Not Recovered/Not Resolved]
  - White blood cells urine positive [Not Recovered/Not Resolved]
  - Erythema [Recovered/Resolved]
  - Urine phosphorus increased [Not Recovered/Not Resolved]
  - Dysuria [Recovered/Resolved]
  - Blood thyroid stimulating hormone decreased [Recovered/Resolved]
  - Urine leukocyte esterase positive [Unknown]
  - Blood urine present [Recovered/Resolved]
  - Dizziness [Not Recovered/Not Resolved]
  - Vertigo [Recovered/Resolved]
  - Gait disturbance [Recovered/Resolved]
  - Insomnia [Not Recovered/Not Resolved]
  - Muscular weakness [Recovering/Resolving]
  - Headache [Recovered/Resolved]
  - Lymphocyte count decreased [Unknown]
  - Crystal urine [Unknown]
  - Blood thyroid stimulating hormone increased [Not Recovered/Not Resolved]
  - Muscular weakness [Recovered/Resolved]
  - Hypoaesthesia [Recovering/Resolving]
  - Cognitive disorder [Not Recovered/Not Resolved]
  - Blood cholesterol increased [Unknown]
  - Frustration tolerance decreased [Recovered/Resolved]
  - Multiple sclerosis relapse [Recovered/Resolved]
  - Red cell distribution width decreased [Recovered/Resolved]
  - Urine ketone body present [Recovered/Resolved]
  - pH urine increased [Recovered/Resolved]
  - Balance disorder [Recovered/Resolved]
  - Muscle spasticity [Not Recovered/Not Resolved]
  - Dizziness [Recovered/Resolved]
  - Rash [Recovered/Resolved]
  - Thyroxine free increased [Unknown]
  - Urinary sediment present [Not Recovered/Not Resolved]
  - Bacterial test [Not Recovered/Not Resolved]
  - Urinary tract infection [Recovered/Resolved]

NARRATIVE: CASE EVENT DATE: 20160907
